FAERS Safety Report 6228556-7 (Version None)
Quarter: 2009Q2

REPORT INFORMATION
  Report Type: 
  Country: None (occurrence: None)
  Receive Date: 20090612
  Receipt Date: 20090608
  Transmission Date: 20091009
  Serious: Yes (Death, Life-Threatening, Hospitalization)
  Sender: FDA-Public Use
  Company Number: GB-AVENTIS-200915336GDDC

PATIENT
  Age: 63 Year
  Sex: Male
  Weight: 71 kg

DRUGS (3)
  1. DOCETAXEL [Suspect]
     Dosage: DOSE: UNK
     Route: 042
     Dates: start: 20090120, end: 20090505
  2. ZOLEDRONIC ACID [Suspect]
     Dosage: DOSE: UNK
     Dates: start: 20090120, end: 20090316
  3. PREDNISOLONE [Suspect]
     Dosage: DOSE: UNK
     Dates: start: 20090121, end: 20090517

REACTIONS (4)
  - LEFT VENTRICULAR FAILURE [None]
  - LOWER RESPIRATORY TRACT INFECTION [None]
  - RENAL FAILURE [None]
  - RESPIRATORY TRACT HAEMORRHAGE [None]
